FAERS Safety Report 9596137 (Version 2)
Quarter: 2013Q4

REPORT INFORMATION
  Report Type: Spontaneous
  Country: US (occurrence: US)
  Receive Date: 20131004
  Receipt Date: 20131004
  Transmission Date: 20140711
  Serious: No
  Sender: FDA-Public Use
  Company Number: US-MYLANLABS-2013S1006297

PATIENT
  Age: 74 Year
  Sex: Female
  Weight: 68.04 kg

DRUGS (2)
  1. CLINDAMYCIN/BENZOYL PEROXIDE GEL [Suspect]
     Indication: RASH
     Route: 061
     Dates: start: 20130307, end: 20130307
  2. CLINDAMYCIN/BENZOYL PEROXIDE GEL [Suspect]
     Indication: RASH
     Route: 061
     Dates: start: 20130307, end: 20130307

REACTIONS (2)
  - Application site pain [Recovered/Resolved]
  - Application site exfoliation [Recovering/Resolving]
